FAERS Safety Report 4454022-5 (Version None)
Quarter: 2004Q3

REPORT INFORMATION
  Report Type: 
  Country: None (occurrence: None)
  Receive Date: 20040920
  Receipt Date: 20040907
  Transmission Date: 20050211
  Serious: Yes (Death, Other)
  Sender: FDA-Public Use
  Company Number: GB-BRISTOL-MYERS SQUIBB COMPANY-12698320

PATIENT
  Age: 42 Year
  Sex: Male

DRUGS (6)
  1. CARBIDOPA AND LEVODOPA [Suspect]
     Indication: PARKINSONIAN GAIT
  2. CLOZAPINE [Suspect]
     Indication: SCHIZOPHRENIA
     Route: 048
  3. MOVICOL [Suspect]
     Indication: CONSTIPATION
     Dosage: ^3350/KCL/NAHCO3/NACL^
  4. LORAZEPAM [Suspect]
  5. ZOPLICONE [Suspect]
  6. CITALOPRAM [Suspect]

REACTIONS (2)
  - CARDIAC DISORDER [None]
  - OVERDOSE [None]
